FAERS Safety Report 25226038 (Version 1)
Quarter: 2025Q2

REPORT INFORMATION
  Report Type: Spontaneous
  Country: US (occurrence: US)
  Receive Date: 20250422
  Receipt Date: 20250422
  Transmission Date: 20250717
  Serious: No
  Sender: PRASCO
  Company Number: US-Prasco Laboratories-PRAS20250165

PATIENT
  Age: 68 Year
  Sex: Female

DRUGS (1)
  1. ESTRADIOL [Suspect]
     Active Substance: ESTRADIOL
     Indication: Blood oestrogen decreased
     Route: 067
     Dates: start: 20250415

REACTIONS (7)
  - Vaginal haemorrhage [Recovered/Resolved]
  - Product dose omission issue [None]
  - Off label use [None]
  - Product residue present [None]
  - Wrong technique in product usage process [None]
  - Wrong technique in product usage process [None]
  - Product use issue [None]

NARRATIVE: CASE EVENT DATE: 20250401
